FAERS Safety Report 15430611 (Version 2)
Quarter: 2018Q3

REPORT INFORMATION
  Report Type: Spontaneous
  Country: IT (occurrence: IT)
  Receive Date: 20180926
  Receipt Date: 20180928
  Transmission Date: 20181010
  Serious: Yes (Other)
  Sender: FDA-Public Use
  Company Number: IT-JNJFOC-20180925677

PATIENT
  Age: 45 Year
  Sex: Male

DRUGS (2)
  1. HALOPERIDOL. [Suspect]
     Active Substance: HALOPERIDOL
     Indication: PSYCHOTIC DISORDER
     Route: 048
  2. PROMAZINE HYDROCHLORIDE [Suspect]
     Active Substance: PROMAZINE HYDROCHLORIDE
     Indication: PSYCHOTIC DISORDER
     Route: 048

REACTIONS (2)
  - Myalgia [Recovering/Resolving]
  - Blood creatine phosphokinase increased [Recovering/Resolving]

NARRATIVE: CASE EVENT DATE: 20180622
